FAERS Safety Report 5959806-X (Version None)
Quarter: 2008Q4

REPORT INFORMATION
  Report Type: 
  Country: None (occurrence: None)
  Receive Date: 20081120
  Receipt Date: 20081117
  Transmission Date: 20090506
  Serious: Yes (Other)
  Sender: FDA-Public Use
  Company Number: A0756820A

PATIENT
  Sex: Female

DRUGS (2)
  1. WELLBUTRIN XL [Suspect]
     Indication: DEPRESSION
     Dosage: 150MG UNKNOWN
     Route: 048
  2. LAMICTAL [Concomitant]

REACTIONS (4)
  - CRYING [None]
  - EMOTIONAL DISORDER [None]
  - FEAR [None]
  - METAMORPHOPSIA [None]
